FAERS Safety Report 5675110-1 (Version None)
Quarter: 2008Q1

REPORT INFORMATION
  Report Type: 
  Country: None (occurrence: None)
  Receive Date: 20080320
  Receipt Date: 20080310
  Transmission Date: 20080703
  Serious: Yes (Hospitalization)
  Sender: FDA-Public Use
  Company Number: CH-PFIZER INC-A200378

PATIENT
  Sex: Female
  Weight: 65 kg

DRUGS (6)
  1. NEURONTIN [Suspect]
     Indication: ILL-DEFINED DISORDER
     Dosage: DAILY DOSE:2200MG
     Route: 048
  2. FELDENE [Interacting]
     Indication: PAIN
     Dosage: DAILY DOSE:40MG-FREQ:DAILY
     Route: 030
     Dates: start: 20011230, end: 20020102
  3. SIRDALUD - SLOW RELEASE [Interacting]
     Indication: ILL-DEFINED DISORDER
     Dosage: DAILY DOSE:12MG
     Route: 048
     Dates: start: 20011001, end: 20020103
  4. SEROPRAM [Interacting]
     Indication: ILL-DEFINED DISORDER
     Dosage: DAILY DOSE:20MG
  5. VOLTAREN [Concomitant]
     Route: 048
     Dates: start: 20011224, end: 20011227
  6. VIOXX [Concomitant]
     Route: 048

REACTIONS (11)
  - BRADYCARDIA [None]
  - CONFUSIONAL STATE [None]
  - DRUG ADMINISTRATION ERROR [None]
  - DRUG INTERACTION [None]
  - DYSARTHRIA [None]
  - DYSPHAGIA [None]
  - HALLUCINATION [None]
  - HYPERTENSION [None]
  - HYPOTENSION [None]
  - HYPOVOLAEMIA [None]
  - INTENTIONAL OVERDOSE [None]
